FAERS Safety Report 25601143 (Version 1)
Quarter: 2025Q3

REPORT INFORMATION
  Report Type: Spontaneous
  Country: EU (occurrence: EU)
  Receive Date: 20250724
  Receipt Date: 20250724
  Transmission Date: 20251020
  Serious: Yes (Other)
  Sender: RANBAXY
  Company Number: EU-SUN PHARMACEUTICAL INDUSTRIES LTD-2025RR-518890

PATIENT
  Age: 19 Year
  Sex: Female
  Weight: 56 kg

DRUGS (1)
  1. SERTRALINE [Suspect]
     Active Substance: SERTRALINE HYDROCHLORIDE
     Indication: Anxiety
     Dosage: 1 PIECE ONCE A DAY
     Route: 048
     Dates: start: 20250125, end: 20250328

REACTIONS (1)
  - Gastrointestinal haemorrhage [Not Recovered/Not Resolved]
